FAERS Safety Report 9705700 (Version 3)
Quarter: 2013Q4

REPORT INFORMATION
  Report Type: Spontaneous
  Country: JP (occurrence: JP)
  Receive Date: 20131122
  Receipt Date: 20131202
  Transmission Date: 20140711
  Serious: Yes (Other)
  Sender: FDA-Public Use
  Company Number: JP-ASTRAZENECA-2013SE84888

PATIENT
  Age: 75 Year
  Sex: Female

DRUGS (3)
  1. XYLOCAINE WITH EPINEPHRINE [Suspect]
     Indication: LOCAL ANAESTHESIA
     Route: 045
     Dates: start: 20131114, end: 20131114
  2. DIPRIVAN [Suspect]
     Indication: GENERAL ANAESTHESIA
     Route: 042
     Dates: start: 20131114, end: 20131114
  3. SEVOFLURANE [Suspect]
     Indication: GENERAL ANAESTHESIA
     Route: 055
     Dates: start: 20131114, end: 20131114

REACTIONS (2)
  - Stress cardiomyopathy [Recovered/Resolved]
  - Arrhythmia [Recovered/Resolved]
